FAERS Safety Report 8068032 (Version 6)
Quarter: 2013Q1

REPORT INFORMATION
  Report Type: Spontaneous
  Country: CA (occurrence: CA)
  Receive Date: 20110803
  Receipt Date: 20130128
  Transmission Date: 20140127
  Serious: Yes (Hospitalization)
  Sender: FDA-Public Use
  Company Number: CA-ROCHE-GNE322274

PATIENT
  Age: 33 Year
  Sex: Female

DRUGS (2)
  1. XOLAIR [Suspect]
     Indication: ASTHMA
     Dosage: 300 MG, Q2W
     Route: 058
     Dates: start: 20080117, end: 20110208
  2. XOLAIR [Suspect]
     Route: 058
     Dates: start: 20090503, end: 2012

REACTIONS (4)
  - Interstitial lung disease [Unknown]
  - Wound complication [Unknown]
  - Asthma [Unknown]
  - Malaise [Unknown]
